FAERS Safety Report 7282644-5 (Version None)
Quarter: 2011Q1

REPORT INFORMATION
  Report Type: 
  Country: None (occurrence: None)
  Receive Date: 20110209
  Receipt Date: 20110131
  Transmission Date: 20110831
  Serious: Yes (Other)
  Sender: FDA-Public Use
  Company Number: BE-SANOFI-AVENTIS-2011SA005855

PATIENT
  Age: 6 Year
  Sex: Male

DRUGS (3)
  1. RASBURICASE [Suspect]
     Route: 042
  2. PREDNISOLONE [Concomitant]
     Route: 065
  3. COLIMYCINE [Concomitant]
     Route: 065

REACTIONS (4)
  - ABDOMINAL PAIN [None]
  - METHAEMOGLOBINAEMIA [None]
  - PANCREATITIS [None]
  - HAEMOLYTIC ANAEMIA [None]
